FAERS Safety Report 6115636-X (Version None)
Quarter: 2009Q1

REPORT INFORMATION
  Report Type: 
  Country: None (occurrence: None)
  Receive Date: 20090313
  Receipt Date: 20090304
  Transmission Date: 20090719
  Serious: Yes (Death, Hospitalization)
  Sender: FDA-Public Use
  Company Number: JP-JNJFOC-20081102904

PATIENT
  Sex: Female
  Weight: 37 kg

DRUGS (10)
  1. REMICADE [Suspect]
     Route: 042
  2. REMICADE [Suspect]
     Route: 042
  3. REMICADE [Suspect]
     Route: 042
  4. REMICADE [Suspect]
     Route: 042
  5. REMICADE [Suspect]
     Dosage: 9 INFUSIONS ON UNKNOWN DATES
     Route: 042
  6. REMICADE [Suspect]
     Indication: RHEUMATOID ARTHRITIS
     Dosage: 10 INFUSIONS
     Route: 042
  7. RHEUMATREX [Suspect]
     Indication: RHEUMATOID ARTHRITIS
     Route: 048
  8. PROGRAF [Suspect]
     Indication: RHEUMATOID ARTHRITIS
     Route: 048
  9. GASTER D [Concomitant]
     Indication: GASTRITIS PROPHYLAXIS
     Route: 048
  10. ALENDRONATE SODIUM [Concomitant]
     Indication: OSTEOPOROSIS
     Route: 048

REACTIONS (11)
  - CYTOMEGALOVIRUS ANTIBODY POSITIVE [None]
  - DEATH [None]
  - DRUG ERUPTION [None]
  - HERPES ZOSTER [None]
  - PANCYTOPENIA [None]
  - PNEUMOCYSTIS JIROVECI PNEUMONIA [None]
  - PNEUMONIA [None]
  - PULMONARY HAEMORRHAGE [None]
  - SKIN INFECTION [None]
  - SKIN NECROSIS [None]
  - TINEA INFECTION [None]
